FAERS Safety Report 14760504 (Version 1)
Quarter: 2018Q2

REPORT INFORMATION
  Report Type: Report from Study
  Country: US (occurrence: US)
  Receive Date: 20180414
  Receipt Date: 20180414
  Transmission Date: 20180711
  Serious: Yes (Death, Hospitalization)
  Sender: FDA-Public Use
  Company Number: US-JNJFOC-20180407406

PATIENT
  Age: 61 Year
  Sex: Female

DRUGS (2)
  1. TYLENOL ARTHRITIS PAIN [Suspect]
     Active Substance: ACETAMINOPHEN
     Route: 048
  2. TYLENOL ARTHRITIS PAIN [Suspect]
     Active Substance: ACETAMINOPHEN
     Indication: SUICIDE ATTEMPT
     Route: 048

REACTIONS (6)
  - Liver function test increased [Fatal]
  - Prothrombin time prolonged [Fatal]
  - Urine output decreased [Fatal]
  - Completed suicide [Fatal]
  - Overdose [Fatal]
  - Blood creatinine increased [Fatal]
